FAERS Safety Report 5895613-4 (Version None)
Quarter: 2008Q3

REPORT INFORMATION
  Report Type: 
  Country: None (occurrence: None)
  Receive Date: 20080924
  Receipt Date: 20070510
  Transmission Date: 20090109
  Serious: Yes (Hospitalization)
  Sender: FDA-Public Use
  Company Number: US-ASTRAZENECA-2006UW17482

PATIENT
  Age: 44 Year
  Sex: Female
  Weight: 149.7 kg

DRUGS (4)
  1. SEROQUEL [Suspect]
     Indication: BIPOLAR DISORDER
     Route: 048
     Dates: start: 19970101, end: 20000101
  2. SEROQUEL [Suspect]
     Indication: DEPRESSION
     Route: 048
     Dates: start: 19970101, end: 20000101
  3. SEROQUEL [Suspect]
     Dosage: 300 MG AND 50 MG
     Route: 048
     Dates: start: 20010501
  4. SEROQUEL [Suspect]
     Dosage: 300 MG AND 50 MG
     Route: 048
     Dates: start: 20010501

REACTIONS (3)
  - DIABETES MELLITUS [None]
  - PNEUMONIA [None]
  - WEIGHT INCREASED [None]
